FAERS Safety Report 16483402 (Version 1)
Quarter: 2019Q2

REPORT INFORMATION
  Report Type: Spontaneous
  Country: US (occurrence: US)
  Receive Date: 20190515
  Receipt Date: 20190515
  Transmission Date: 20190711
  Serious: No
  Sender: FDA-Public Use
  Company Number: None

PATIENT
  Age: 60 Year
  Sex: Female
  Weight: 70.31 kg

DRUGS (16)
  1. VITAMIN E [Concomitant]
     Active Substance: .ALPHA.-TOCOPHEROL
  2. MULTIPLE VITAMIN [Concomitant]
     Active Substance: VITAMINS
  3. CEVEMALINE [Concomitant]
  4. DIPHENHYDRAMINE. [Concomitant]
     Active Substance: DIPHENHYDRAMINE
  5. AJOVY [Suspect]
     Active Substance: FREMANEZUMAB-VFRM
     Indication: MIGRAINE
     Dosage: ?          QUANTITY:225 MG/1.5ML;?
     Route: 058
     Dates: start: 20190115, end: 20190223
  6. PROPANALOL [Concomitant]
  7. PROTRIPTYLINE [Concomitant]
     Active Substance: PROTRIPTYLINE
  8. KETOROLAC [Concomitant]
     Active Substance: KETOROLAC\KETOROLAC TROMETHAMINE
  9. ACETAZOLAMIDE. [Concomitant]
     Active Substance: ACETAZOLAMIDE
  10. MIDRIN [Concomitant]
     Active Substance: ACETAMINOPHEN\DICHLORALPHENAZONE\ISOMETHEPTENE
  11. PROCHLORPERAZINE. [Concomitant]
     Active Substance: PROCHLORPERAZINE
  12. CYMBALATA [Concomitant]
  13. ONDANCETRON [Concomitant]
  14. ORPHENADRINE WITH ASPIRIN + CAFFEINE [Concomitant]
  15. FISH OIL [Concomitant]
     Active Substance: FISH OIL
  16. FLONASE [Concomitant]
     Active Substance: FLUTICASONE PROPIONATE

REACTIONS (3)
  - Crying [None]
  - Migraine [None]
  - Depression [None]

NARRATIVE: CASE EVENT DATE: 20190115
